FAERS Safety Report 6584020-7 (Version None)
Quarter: 2010Q1

REPORT INFORMATION
  Report Type: 
  Country: None (occurrence: None)
  Receive Date: 20100216
  Receipt Date: 20100204
  Transmission Date: 20100710
  Serious: Yes (Death)
  Sender: FDA-Public Use
  Company Number: US-GILEAD-2009-0026232

PATIENT
  Sex: Female

DRUGS (12)
  1. LETAIRIS [Suspect]
     Indication: PULMONARY ARTERIAL HYPERTENSION
     Route: 048
     Dates: start: 20090921
  2. REVATIO [Concomitant]
  3. LASIX [Concomitant]
  4. ULTRASE MT20 [Concomitant]
  5. PULMOZYME [Concomitant]
  6. ALDACTONE [Concomitant]
  7. TOBRAMYCIN [Concomitant]
  8. POTASSIUM [Concomitant]
  9. OXYCODONE HCL [Concomitant]
  10. ZOFRAN [Concomitant]
  11. SYNTHROID [Concomitant]
  12. NEXIUM [Concomitant]

REACTIONS (1)
  - DEATH [None]
